FAERS Safety Report 9744327 (Version 2)
Quarter: 2013Q4

REPORT INFORMATION
  Report Type: Spontaneous
  Country: FR (occurrence: FR)
  Receive Date: 20131210
  Receipt Date: 20131223
  Transmission Date: 20140711
  Serious: Yes (Life-Threatening)
  Sender: FDA-Public Use
  Company Number: FR-UCBSA-104871

PATIENT
  Age: 45 Year
  Sex: Female
  Weight: 55 kg

DRUGS (3)
  1. KEPPRA [Suspect]
     Indication: EPILEPSY
     Route: 048
     Dates: start: 20130912, end: 20131101
  2. VIMPAT [Concomitant]
     Indication: EPILEPSY
     Route: 048
     Dates: start: 201102
  3. TEGRETOL [Concomitant]
     Indication: EPILEPSY
     Dates: start: 2006

REACTIONS (1)
  - Major depression [Recovered/Resolved]
